FAERS Safety Report 11802553 (Version 1)
Quarter: 2015Q4

REPORT INFORMATION
  Report Type: Report from Study
  Country: US (occurrence: US)
  Receive Date: 20151204
  Receipt Date: 20151204
  Transmission Date: 20160305
  Serious: Yes (Hospitalization, Other)
  Sender: FDA-Public Use
  Company Number: US-009507513-1512USA000449

PATIENT
  Age: 62 Year
  Sex: Female

DRUGS (18)
  1. DIPHENOXYLATE [Concomitant]
     Active Substance: DIPHENOXYLATE
  2. ZOLPIDEM TARTRATE. [Concomitant]
     Active Substance: ZOLPIDEM TARTRATE
  3. TEMOZOLOMIDE. [Suspect]
     Active Substance: TEMOZOLOMIDE
     Dosage: UNK
     Route: 048
     Dates: start: 201308
  4. ONDANSETRON [Concomitant]
     Active Substance: ONDANSETRON
     Dosage: UNK
     Dates: start: 201309
  5. TEMOZOLOMIDE. [Suspect]
     Active Substance: TEMOZOLOMIDE
     Dosage: UNK
     Route: 048
     Dates: start: 201311
  6. FOSAMAX [Concomitant]
     Active Substance: ALENDRONATE SODIUM
  7. VITAMINS (UNSPECIFIED) [Concomitant]
     Active Substance: VITAMINS
  8. OXYCODONE [Concomitant]
     Active Substance: OXYCODONE
  9. TEMOZOLOMIDE. [Suspect]
     Active Substance: TEMOZOLOMIDE
     Indication: GLIOBLASTOMA MULTIFORME
     Dosage: UNK
     Route: 048
     Dates: start: 201307
  10. ONDANSETRON [Concomitant]
     Active Substance: ONDANSETRON
     Dosage: UNK
     Dates: start: 201308
  11. HEXADROL [Concomitant]
     Active Substance: DEXAMETHASONE
     Dosage: UNK
  12. ACETAMINOPHEN (+) HYDROCODONE BITARTRATE [Concomitant]
     Active Substance: ACETAMINOPHEN\HYDROCODONE
  13. CALCIUM (UNSPECIFIED) [Concomitant]
     Active Substance: CALCIUM
  14. NEXIUM [Concomitant]
     Active Substance: ESOMEPRAZOLE MAGNESIUM
  15. NICARDIPINE HYDROCHLORIDE. [Concomitant]
     Active Substance: NICARDIPINE HYDROCHLORIDE
     Dosage: UNK
     Dates: start: 201103, end: 201404
  16. ACETAMINOPHEN. [Concomitant]
     Active Substance: ACETAMINOPHEN
  17. PIROXICAM. [Concomitant]
     Active Substance: PIROXICAM
  18. ALPRAZOLAM. [Concomitant]
     Active Substance: ALPRAZOLAM

REACTIONS (4)
  - Jaundice [Unknown]
  - Hepatic necrosis [Unknown]
  - Pancreatitis acute [Unknown]
  - Hepatitis [Unknown]

NARRATIVE: CASE EVENT DATE: 201309
